FAERS Safety Report 4436481-7 (Version None)
Quarter: 2004Q3

REPORT INFORMATION
  Report Type: 
  Country: None (occurrence: None)
  Receive Date: 20040830
  Receipt Date: 20040517
  Transmission Date: 20050211
  Serious: Yes (Other)
  Sender: FDA-Public Use
  Company Number: US-BRISTOL-MYERS SQUIBB COMPANY-12596102

PATIENT
  Age: 14 Year
  Sex: Male

DRUGS (5)
  1. ABILIFY [Suspect]
     Indication: IMPULSE-CONTROL DISORDER
     Route: 048
     Dates: start: 20030814, end: 20030817
  2. ABILIFY [Suspect]
     Indication: AFFECTIVE DISORDER
     Route: 048
     Dates: start: 20030814, end: 20030817
  3. CLONIDINE HCL [Concomitant]
     Route: 048
  4. CONCERTA [Concomitant]
     Dosage: (2 TABS QHS)
     Route: 048
  5. PAXIL [Concomitant]
     Dosage: (1 TAB QAM)
     Route: 048

REACTIONS (1)
  - EXTRAPYRAMIDAL DISORDER [None]
